FAERS Safety Report 5459390-3 (Version None)
Quarter: 2007Q3

REPORT INFORMATION
  Report Type: 
  Country: None (occurrence: None)
  Receive Date: 20070919
  Receipt Date: 20070911
  Transmission Date: 20080115
  Serious: Yes (Other)
  Sender: FDA-Public Use
  Company Number: US-ELI_LILLY_AND_COMPANY-US200709002057

PATIENT
  Sex: Female

DRUGS (2)
  1. FORTEO [Suspect]
     Dosage: UNK, DAILY (1/D)
  2. PLAVIX [Concomitant]

REACTIONS (4)
  - BONE NEOPLASM [None]
  - DYSURIA [None]
  - INJECTION SITE BRUISING [None]
  - MYOCARDIAL INFARCTION [None]
